FAERS Safety Report 7432993-2 (Version None)
Quarter: 2011Q2

REPORT INFORMATION
  Report Type: 
  Country: None (occurrence: None)
  Receive Date: 20110422
  Receipt Date: 20110413
  Transmission Date: 20111010
  Serious: No
  Sender: FDA-Public Use
  Company Number: US-B.I. PHARMACEUTICALS,INC./RIDGEFIELD-2011-BP-10712BP

PATIENT
  Sex: Female

DRUGS (8)
  1. PRADAXA [Suspect]
     Indication: ATRIAL FLUTTER
     Dosage: 300 MG
     Route: 048
     Dates: start: 20101101
  2. MULTAQ [Concomitant]
     Indication: ATRIAL FLUTTER
     Dosage: 800 MG
     Route: 048
  3. LOTRIL [Concomitant]
     Indication: HYPERTENSION
     Route: 048
  4. CARDIZEM [Concomitant]
     Indication: ATRIAL FLUTTER
     Dosage: 120 MG
     Route: 048
  5. DIGOXIN [Concomitant]
     Indication: ATRIAL FLUTTER
     Dosage: 0.125 MG
     Route: 048
  6. METFORMIN [Concomitant]
     Indication: DIABETES MELLITUS
     Dosage: 1000 MG
     Route: 048
  7. ZOCOR [Concomitant]
     Indication: HYPERLIPIDAEMIA
     Dosage: 40 MG
     Route: 048
  8. JANUVIA [Concomitant]
     Indication: DIABETES MELLITUS
     Dosage: 100 MG
     Route: 048

REACTIONS (2)
  - HAEMATURIA [None]
  - NEPHROLITHIASIS [None]
